FAERS Safety Report 8979278 (Version 1)
Quarter: 2012Q4

REPORT INFORMATION
  Report Type: 
  Country: US (occurrence: US)
  Receive Date: 20121221
  Receipt Date: 20121221
  Transmission Date: 20130627
  Serious: No
  Sender: FDA-Public Use
  Company Number: US-PFIZER INC-2012323819

PATIENT
  Age: 83 Year
  Sex: Female

DRUGS (2)
  1. ADVIL [Suspect]
     Dosage: UNK, every 4 hrs
  2. ACETYLSALICYLIC ACID [Interacting]
     Dosage: 81 mg, UNK

REACTIONS (3)
  - Intentional drug misuse [Unknown]
  - Drug interaction [Unknown]
  - Blood pressure increased [Unknown]
